FAERS Safety Report 7401154-5 (Version None)
Quarter: 2011Q2

REPORT INFORMATION
  Report Type: 
  Country: None (occurrence: None)
  Receive Date: 20110407
  Receipt Date: 20110323
  Transmission Date: 20111010
  Serious: Yes (Death, Life-Threatening, Hospitalization)
  Sender: FDA-Public Use
  Company Number: BR-ACTELION-A-NJ2011-46181

PATIENT

DRUGS (7)
  1. SILDENAFIL [Concomitant]
     Indication: PULMONARY ARTERIAL HYPERTENSION
     Dosage: 20 MG, TID
     Route: 048
     Dates: start: 20080801, end: 20110318
  2. CLOPIDOGREL [Concomitant]
  3. HYDROCHLOROTHIAZIDE [Concomitant]
  4. LOSARTAN POTASSIUM [Concomitant]
  5. BOSENTAN [Suspect]
     Indication: PULMONARY ARTERIAL HYPERTENSION
     Dosage: 125 MG, BID
     Route: 048
     Dates: start: 20100210, end: 20110310
  6. BOSENTAN [Suspect]
     Dosage: 62.5 MG, BID
     Route: 048
     Dates: start: 20100120, end: 20100209
  7. CYCLOPHOSPHAMIDE [Suspect]
     Indication: CONNECTIVE TISSUE DISORDER
     Dosage: UNK
     Dates: start: 20110101

REACTIONS (4)
  - ANAEMIA HAEMOLYTIC AUTOIMMUNE [None]
  - DYSPNOEA [None]
  - HAEMODYNAMIC INSTABILITY [None]
  - HAEMOGLOBIN DECREASED [None]
